FAERS Safety Report 14777013 (Version 4)
Quarter: 2019Q2

REPORT INFORMATION
  Report Type: Report from Study
  Country: CA (occurrence: CA)
  Receive Date: 20180419
  Receipt Date: 20190619
  Transmission Date: 20190711
  Serious: Yes (Other)
  Sender: FDA-Public Use
  Company Number: CA-BRISTOL-MYERS SQUIBB COMPANY-BMS-2018-032325

PATIENT
  Sex: Male

DRUGS (1)
  1. ABATACEPT [Suspect]
     Active Substance: ABATACEPT
     Indication: RHEUMATOID ARTHRITIS
     Dosage: 125 MG, QWK
     Route: 058
     Dates: start: 20180216

REACTIONS (6)
  - Insomnia [Unknown]
  - Arthritis [Unknown]
  - Drug ineffective [Unknown]
  - Dupuytren^s contracture [Unknown]
  - Rheumatoid arthritis [Unknown]
  - Arthralgia [Unknown]
